FAERS Safety Report 22300531 (Version 2)
Quarter: 2023Q2

REPORT INFORMATION
  Report Type: Spontaneous
  Country: EC (occurrence: EC)
  Receive Date: 20230509
  Receipt Date: 20230511
  Transmission Date: 20230721
  Serious: Yes (Death, Life-Threatening, Hospitalization, Other)
  Sender: FDA-Public Use
  Company Number: EC-MLMSERVICE-20230427-4253683-1

PATIENT
  Age: 63 Year
  Sex: Male

DRUGS (3)
  1. ETANERCEPT [Suspect]
     Active Substance: ETANERCEPT
     Indication: Still^s disease
     Dosage: UNK, CYCLIC (CHRONICALLY TREATED- 2 CYCLES)
  2. METHOTREXATE SODIUM [Suspect]
     Active Substance: METHOTREXATE SODIUM
     Indication: Still^s disease
     Dosage: UNK (CHRONICALLY TREATED)
  3. PREDNISONE [Suspect]
     Active Substance: PREDNISONE
     Indication: Still^s disease
     Dosage: UNK
     Route: 048

REACTIONS (7)
  - Brain abscess [Fatal]
  - Ileus paralytic [Fatal]
  - Multiple organ dysfunction syndrome [Fatal]
  - Cerebral nocardiosis [Fatal]
  - Hemiparesis [Fatal]
  - Lung consolidation [Fatal]
  - Off label use [Unknown]
